FAERS Safety Report 13162531 (Version 1)
Quarter: 2017Q1

REPORT INFORMATION
  Report Type: Spontaneous
  Country: US (occurrence: US)
  Receive Date: 20170130
  Receipt Date: 20170130
  Transmission Date: 20170428
  Serious: Yes (Hospitalization, Other)
  Sender: FDA-Public Use
  Company Number: US-GLENMARK PHARMACEUTICALS-2017GMK026061

PATIENT
  Age: 45 Year
  Sex: Female

DRUGS (5)
  1. SALINE                             /00075401/ [Concomitant]
     Active Substance: SODIUM CHLORIDE
     Dosage: 1 L, BOLUS
     Route: 065
  2. LIDOCAINE. [Suspect]
     Active Substance: LIDOCAINE
     Indication: BACK PAIN
     Dosage: TWO ML MILLILITERS OF A 0.5% LIDOCAINE SOLUTION CONTAINING 80 MG METHYLPREDNISOLONE
     Route: 037
  3. SALINE                             /00075401/ [Concomitant]
     Active Substance: SODIUM CHLORIDE
     Indication: PRODUCT USED FOR UNKNOWN INDICATION
     Dosage: UNK
     Route: 065
  4. METHYLPREDNISOLONE. [Suspect]
     Active Substance: METHYLPREDNISOLONE
     Indication: BACK PAIN
     Dosage: TWO ML MILLILITERS OF A 0.5% LIDOCAINE SOLUTION CONTAINING 80 MG METHYLPREDNISOLONE
     Route: 037
  5. BETAMETHASONE DIPROPIONATE. [Suspect]
     Active Substance: BETAMETHASONE DIPROPIONATE
     Indication: BACK PAIN
     Dosage: 12 MG, UNK
     Route: 037

REACTIONS (3)
  - Incorrect route of drug administration [Recovered/Resolved]
  - Pneumocephalus [Recovered/Resolved]
  - Meningitis chemical [Recovered/Resolved]
